FAERS Safety Report 8533662-8 (Version None)
Quarter: 2012Q3

REPORT INFORMATION
  Report Type: 
  Country: None (occurrence: None)
  Receive Date: 20120724
  Receipt Date: 20120717
  Transmission Date: 20120928
  Serious: No
  Sender: FDA-Public Use
  Company Number: US-PFIZER INC-2012138599

PATIENT
  Sex: Male

DRUGS (2)
  1. BENADRYL [Suspect]
     Dosage: UNK
  2. BICILLIN L-A [Suspect]
     Indication: LYME DISEASE
     Dosage: 1.2 MG, UNK

REACTIONS (3)
  - HYPERSENSITIVITY [None]
  - PAIN [None]
  - EYE OEDEMA [None]
